FAERS Safety Report 6170835-6 (Version None)
Quarter: 2009Q2

REPORT INFORMATION
  Report Type: 
  Country: None (occurrence: None)
  Receive Date: 20090427
  Receipt Date: 20090414
  Transmission Date: 20091009
  Serious: Yes (Hospitalization, Other)
  Sender: FDA-Public Use
  Company Number: 234143K09USA

PATIENT
  Age: 48 Year
  Sex: Female

DRUGS (5)
  1. REBIF [Suspect]
     Indication: MULTIPLE SCLEROSIS
     Dosage: 44 MCG, 3 IN 1 WEEKS, SUBCUTANEOUS
     Route: 058
     Dates: start: 20080116
  2. TRAZODONE HCL [Suspect]
     Indication: SLEEP DISORDER
     Dosage: 150 MG, 300 MG, ONCE, 150 MG, 1 IN 1 DAYS
     Dates: start: 20090107, end: 20090101
  3. TRAZODONE HCL [Suspect]
     Indication: SLEEP DISORDER
     Dosage: 150 MG, 300 MG, ONCE, 150 MG, 1 IN 1 DAYS
     Dates: start: 20080116
  4. TRAZODONE HCL [Suspect]
     Indication: SLEEP DISORDER
     Dosage: 150 MG, 300 MG, ONCE, 150 MG, 1 IN 1 DAYS
     Dates: start: 20081001
  5. TRAZODONE HCL [Suspect]
     Indication: SLEEP DISORDER
     Dosage: 150 MG, 300 MG, ONCE, 150 MG, 1 IN 1 DAYS
     Dates: start: 20090101

REACTIONS (2)
  - CONVULSION [None]
  - LOSS OF CONSCIOUSNESS [None]
